FAERS Safety Report 15685379 (Version 4)
Quarter: 2019Q2

REPORT INFORMATION
  Report Type: Report from Study
  Country: DE (occurrence: DE)
  Receive Date: 20181204
  Receipt Date: 20190529
  Transmission Date: 20190711
  Serious: Yes (Hospitalization, Other)
  Sender: FDA-Public Use
  Company Number: PHHY2018DE093432

PATIENT
  Age: 68 Year
  Sex: Male
  Weight: 114 kg

DRUGS (1)
  1. ENTRESTO [Suspect]
     Active Substance: SACUBITRIL\VALSARTAN
     Indication: CARDIAC FAILURE
     Dosage: UNK
     Route: 065
     Dates: start: 20180205

REACTIONS (3)
  - Renal failure [Recovering/Resolving]
  - Blood potassium increased [Unknown]
  - Mitral valve incompetence [Recovering/Resolving]

NARRATIVE: CASE EVENT DATE: 20180216
